FAERS Safety Report 11269787 (Version 2)
Quarter: 2015Q4

REPORT INFORMATION
  Report Type: Report from Study
  Country: US (occurrence: US)
  Receive Date: 20150714
  Receipt Date: 20151119
  Transmission Date: 20160304
  Serious: Yes (Hospitalization, Other)
  Sender: FDA-Public Use
  Company Number: US-BAXALTA-2015BLT000397

PATIENT
  Age: 37 Year
  Sex: Male
  Weight: 107.4 kg

DRUGS (8)
  1. LOSARTAN POTASSIUM. [Concomitant]
     Active Substance: LOSARTAN POTASSIUM
     Indication: HYPERTENSION
     Dosage: 100 MG, 1X A DAY
     Route: 065
     Dates: start: 20140329
  2. PEGYLATED COAGULATION FACTOR VIII [Suspect]
     Active Substance: RURIOCTOCOG ALFA PEGOL
     Indication: FACTOR VIII DEFICIENCY
     Dosage: 43 IU/KG, ONCE
     Route: 042
     Dates: start: 20131122, end: 20131122
  3. CETIRIZINE HYDROCHLORIDE. [Concomitant]
     Active Substance: CETIRIZINE HYDROCHLORIDE
     Indication: HYPERSENSITIVITY
     Dosage: 10 MG, 1X A DAY
     Route: 065
     Dates: start: 201406
  4. PEGYLATED COAGULATION FACTOR VIII [Suspect]
     Active Substance: RURIOCTOCOG ALFA PEGOL
     Dosage: 60 IU/KG, EVERY 5 DAYS
     Route: 042
     Dates: start: 20150630, end: 20150630
  5. PEGYLATED COAGULATION FACTOR VIII [Suspect]
     Active Substance: RURIOCTOCOG ALFA PEGOL
     Indication: PROPHYLAXIS
     Dosage: EVERY 5 DAYS
     Route: 042
     Dates: start: 20150624, end: 20150624
  6. PEGYLATED COAGULATION FACTOR VIII [Suspect]
     Active Substance: RURIOCTOCOG ALFA PEGOL
     Dosage: EVERY 5 DAYS
     Route: 042
     Dates: start: 20150624, end: 20150624
  7. PEGYLATED COAGULATION FACTOR VIII [Suspect]
     Active Substance: RURIOCTOCOG ALFA PEGOL
     Dosage: UNK
     Dates: start: 20150630, end: 20150630
  8. CELECOXIB. [Concomitant]
     Active Substance: CELECOXIB
     Indication: HAEMOPHILIC ARTHROPATHY
     Dosage: 200 MG, 1X A DAY
     Dates: start: 201309

REACTIONS (1)
  - Pneumonia [Recovered/Resolved]

NARRATIVE: CASE EVENT DATE: 20150629
